FAERS Safety Report 8958547 (Version 1)
Quarter: 2012Q4

REPORT INFORMATION
  Report Type: Spontaneous
  Country: JP (occurrence: None)
  Receive Date: 20121204
  Receipt Date: 20121204
  Transmission Date: 20130627
  Serious: Yes (Other)
  Sender: FDA-Public Use
  Company Number: DSA_61075_2012

PATIENT

DRUGS (2)
  1. FLUOROURACIL (FLUOROURACIL) [Suspect]
     Indication: HEPATIC NEOPLASM MALIGNANT
     Dosage: 500 mg daily intravenous (not otherwise specified)
     Route: 042
  2. PEGINTERFERON ALFA 2A [Suspect]
     Indication: HEPATIC NEOPLASM MALIGNANT
     Route: 058

REACTIONS (1)
  - Rash [None]
